FAERS Safety Report 5801501-1 (Version None)
Quarter: 2008Q3

REPORT INFORMATION
  Report Type: 
  Country: None (occurrence: None)
  Receive Date: 20080707
  Receipt Date: 20080623
  Transmission Date: 20090109
  Serious: Yes (Other)
  Sender: FDA-Public Use
  Company Number: US-ROCHE-562584

PATIENT
  Age: 49 Year
  Sex: Female

DRUGS (10)
  1. PEGASYS [Suspect]
     Indication: HEPATITIS C
     Route: 065
     Dates: start: 20060301, end: 20070301
  2. RIBAVIRIN [Suspect]
     Indication: HEPATITIS C
     Route: 065
     Dates: start: 20060301, end: 20070301
  3. LEVOTHYROXINE SODIUM [Concomitant]
     Indication: THYROID DISORDER
     Dosage: DRUG NAME LEVOTHYROXIN
  4. NEXIUM [Concomitant]
  5. HYDROCHLOROTHIAZIDE [Concomitant]
     Dosage: DRUG NAME TRIM-HCTZ
  6. DICYCLOMINE [Concomitant]
  7. LAMICTAL [Concomitant]
  8. ASPIRIN [Concomitant]
  9. 1 CONCOMITANT DRUG [Concomitant]
     Dosage: DRUG HERBS
  10. MULTI-VITAMIN [Concomitant]

REACTIONS (20)
  - ALOPECIA [None]
  - AMNESIA [None]
  - ANAEMIA [None]
  - DEPRESSION [None]
  - DRY SKIN [None]
  - DYSPNOEA [None]
  - FATIGUE [None]
  - FEELING OF DESPAIR [None]
  - HEADACHE [None]
  - HYPOPHAGIA [None]
  - INSOMNIA [None]
  - MENINGIOMA [None]
  - NAUSEA [None]
  - PAROSMIA [None]
  - PRURITUS [None]
  - RASH [None]
  - SKIN DISORDER [None]
  - THERMOHYPERAESTHESIA [None]
  - VISUAL IMPAIRMENT [None]
  - WEIGHT DECREASED [None]
